FAERS Safety Report 16794843 (Version 1)
Quarter: 2019Q3

REPORT INFORMATION
  Report Type: Report from Study
  Country: BR (occurrence: BR)
  Receive Date: 20190911
  Receipt Date: 20190911
  Transmission Date: 20191005
  Serious: Yes (Other)
  Sender: FDA-Public Use
  Company Number: BR-UCBSA-2019038329

PATIENT
  Age: 54 Year
  Sex: Female
  Weight: 45 kg

DRUGS (2)
  1. CERTOLIZUMAB PEGOL [Suspect]
     Active Substance: CERTOLIZUMAB PEGOL
     Indication: RHEUMATOID ARTHRITIS
     Dosage: 200 MILLIGRAM, EV 2 WEEKS(QOW)
     Route: 058
     Dates: start: 201801, end: 201903
  2. VITAMINA D3 [Concomitant]
     Active Substance: CHOLECALCIFEROL
     Indication: LEPROSY
     Dosage: UNK
     Route: 048
     Dates: start: 2018

REACTIONS (1)
  - Leprosy [Not Recovered/Not Resolved]

NARRATIVE: CASE EVENT DATE: 20190305
